FAERS Safety Report 5981879-9 (Version None)
Quarter: 2008Q4

REPORT INFORMATION
  Report Type: 
  Country: None (occurrence: None)
  Receive Date: 20081202
  Receipt Date: 20081120
  Transmission Date: 20090506
  Serious: Yes (Hospitalization)
  Sender: FDA-Public Use
  Company Number: 2008SP023752

PATIENT
  Age: 68 Year
  Sex: Male

DRUGS (2)
  1. PEG-INTRON [Suspect]
     Indication: HEPATITIS C
     Dosage: SC, SC
     Route: 058
     Dates: start: 20080301, end: 20080301
  2. PEG-INTRON [Suspect]
     Indication: HEPATITIS C
     Dosage: SC, SC
     Route: 058
     Dates: start: 20081113

REACTIONS (5)
  - DEHYDRATION [None]
  - FLUID INTAKE REDUCED [None]
  - HYPOPHAGIA [None]
  - MALAISE [None]
  - RENAL IMPAIRMENT [None]
